FAERS Safety Report 7560440-9 (Version None)
Quarter: 2011Q2

REPORT INFORMATION
  Report Type: 
  Country: None (occurrence: None)
  Receive Date: 20110621
  Receipt Date: 20110606
  Transmission Date: 20111010
  Serious: Yes (Hospitalization, Other)
  Sender: FDA-Public Use
  Company Number: GB-WATSON-2011-08158

PATIENT
  Age: 25 Year
  Sex: Male

DRUGS (4)
  1. METRONIDAZOLE [Suspect]
     Indication: HELICOBACTER INFECTION
     Dosage: UNK
     Route: 048
  2. UNSPECIFIED DRUGS [Concomitant]
     Indication: PRODUCT USED FOR UNKNOWN INDICATION
  3. LANSOPRAZOLE [Suspect]
     Indication: HELICOBACTER INFECTION
     Dosage: UNK
     Route: 048
  4. CLARITHROMYCIN [Suspect]
     Indication: HELICOBACTER INFECTION
     Dosage: UNK
     Route: 048

REACTIONS (6)
  - SWOLLEN TONGUE [None]
  - INSOMNIA [None]
  - COORDINATION ABNORMAL [None]
  - ATAXIA [None]
  - AGITATION [None]
  - CONFUSIONAL STATE [None]
